FAERS Safety Report 10186825 (Version 2)
Quarter: 2014Q2

REPORT INFORMATION
  Report Type: Report from Study
  Country: US (occurrence: US)
  Receive Date: 20140522
  Receipt Date: 20140522
  Transmission Date: 20141212
  Serious: Yes (Hospitalization)
  Sender: FDA-Public Use
  Company Number: US-ROCHE-1402504

PATIENT
  Sex: Female

DRUGS (7)
  1. LUCENTIS [Suspect]
     Indication: EYE HAEMORRHAGE
     Route: 050
     Dates: start: 20140117, end: 20140411
  2. LUCENTIS [Suspect]
     Indication: AGE-RELATED MACULAR DEGENERATION
  3. ATORVASTATIN [Concomitant]
     Indication: BLOOD CHOLESTEROL INCREASED
  4. BYSTOLIC [Concomitant]
     Indication: HYPERTENSION
  5. BENAZEPRIL [Concomitant]
     Indication: HYPERTENSION
  6. AMLODIPINE [Concomitant]
     Indication: HYPERTENSION
  7. TIMOLOL [Concomitant]
     Dosage: LEFT EYE
     Route: 065

REACTIONS (1)
  - Lung disorder [Unknown]
